FAERS Safety Report 6356809-0 (Version None)
Quarter: 2009Q3

REPORT INFORMATION
  Report Type: 
  Country: None (occurrence: None)
  Receive Date: 20090915
  Receipt Date: 20090907
  Transmission Date: 20100115
  Serious: Yes (Hospitalization)
  Sender: FDA-Public Use
  Company Number: SL-ASTRAZENECA-2009SE10085

PATIENT
  Age: 20476 Day
  Sex: Female

DRUGS (1)
  1. XYLOCAINE [Suspect]
     Dosage: 1 ML CONTAINES 20MG OF LIDOCAINE HYDROCHLORIDE
     Dates: start: 20090812, end: 20090812

REACTIONS (3)
  - BLOOD PRESSURE FLUCTUATION [None]
  - PYREXIA [None]
  - TREMOR [None]
